FAERS Safety Report 18607833 (Version 1)
Quarter: 2020Q4

REPORT INFORMATION
  Report Type: Spontaneous
  Country: JP (occurrence: JP)
  Receive Date: 20201211
  Receipt Date: 20201211
  Transmission Date: 20210114
  Serious: Yes (Death, Hospitalization, Other)
  Sender: FDA-Public Use
  Company Number: JP-PFIZER INC-2020485483

PATIENT
  Age: 75 Year
  Sex: Female
  Weight: 52 kg

DRUGS (8)
  1. SUTENT [Suspect]
     Active Substance: SUNITINIB MALATE
     Indication: RENAL CANCER
     Dosage: 37.5 MG, CYCLIC (12.5 MG 3 CAPSULES ONCE A DAY 2 WEEKS-ON AND 1 WEEK-OFF AFTER BREAKFAST)
     Route: 048
     Dates: start: 20200610, end: 20200623
  2. OPDIVO [Suspect]
     Active Substance: NIVOLUMAB
     Indication: RENAL CANCER
     Dosage: 240 MG, 1X/DAY
     Route: 041
     Dates: start: 20200707, end: 20200707
  3. RIZABEN [Concomitant]
     Active Substance: TRANILAST
     Indication: KELOID SCAR
     Dosage: UNK
     Route: 048
  4. VICTOZA [Concomitant]
     Active Substance: LIRAGLUTIDE
     Dosage: UNK
  5. ATORVASTATIN CALCIUM. [Concomitant]
     Active Substance: ATORVASTATIN CALCIUM
     Dosage: UNK
  6. EQUMET [Concomitant]
     Active Substance: METFORMIN HYDROCHLORIDE\VILDAGLIPTIN
     Dosage: UNK
  7. IRBETAN [Concomitant]
     Active Substance: IRBESARTAN
     Dosage: UNK
     Dates: start: 20200709
  8. SUREPOST [Concomitant]
     Active Substance: REPAGLINIDE
     Dosage: UNK
     Dates: end: 20200630

REACTIONS (11)
  - Hypophagia [Unknown]
  - Haematemesis [Unknown]
  - Malaise [Unknown]
  - Myelosuppression [Unknown]
  - Acidosis [Fatal]
  - Depressed level of consciousness [Unknown]
  - Decreased appetite [Unknown]
  - Thyroid function test abnormal [Fatal]
  - Hyperglycaemia [Fatal]
  - Hyperthyroidism [Unknown]
  - Vomiting [Unknown]

NARRATIVE: CASE EVENT DATE: 20200610
